FAERS Safety Report 6920791-5 (Version None)
Quarter: 2010Q3

REPORT INFORMATION
  Report Type: 
  Country: None (occurrence: None)
  Receive Date: 20100812
  Receipt Date: 20100804
  Transmission Date: 20110219
  Serious: Yes (Hospitalization)
  Sender: FDA-Public Use
  Company Number: US-JNJFOC-20100801693

PATIENT
  Sex: Female
  Weight: 61.24 kg

DRUGS (2)
  1. TOPAMAX [Suspect]
     Indication: CONVULSION
     Dosage: 200 MG PLUS 25 MG 2 BID
     Route: 048
  2. ADVIL LIQUI-GELS [Concomitant]
     Indication: HEADACHE
     Route: 048

REACTIONS (1)
  - MUSCLE TWITCHING [None]
